FAERS Safety Report 6273684-3 (Version None)
Quarter: 2009Q3

REPORT INFORMATION
  Report Type: 
  Country: None (occurrence: None)
  Receive Date: 20090713
  Receipt Date: 20080623
  Transmission Date: 20100115
  Serious: Yes (Hospitalization)
  Sender: FDA-Public Use
  Company Number: 571717

PATIENT
  Age: 72 Year
  Sex: Female
  Weight: 49 kg

DRUGS (3)
  1. BONIVA [Suspect]
     Indication: OSTEOPOROSIS
     Dosage: 1 PER MONTH ORAL
     Route: 048
     Dates: start: 20060101
  2. ANTI-INFLAMMATORY DRUG (ANTI-INFLAMMATORY AGENT NOS) [Suspect]
     Indication: ARTHRALGIA
     Dates: start: 20060101, end: 20080101
  3. MULTIPLE UNSPECIFIED MEDICATIONS (GENERIC UNKNOWN) [Concomitant]

REACTIONS (2)
  - GASTRIC ULCER [None]
  - OSTEOARTHRITIS [None]
